FAERS Safety Report 6027302-X (Version None)
Quarter: 2009Q1

REPORT INFORMATION
  Report Type: 
  Country: None (occurrence: None)
  Receive Date: 20090105
  Receipt Date: 20090102
  Transmission Date: 20090719
  Serious: Yes (Other)
  Sender: FDA-Public Use
  Company Number: A0761111A

PATIENT
  Age: 57 Year
  Sex: Male

DRUGS (9)
  1. PAXIL [Suspect]
     Indication: DEPRESSION
     Route: 048
  2. WELLBUTRIN [Concomitant]
  3. PROVIGIL [Concomitant]
  4. CLONAZEPAM [Concomitant]
  5. DIAZEPAM [Concomitant]
  6. NAMENDA [Concomitant]
  7. GABAPENTIN [Concomitant]
  8. PREVACID [Concomitant]
  9. TOPRAL [Concomitant]

REACTIONS (4)
  - ABNORMAL BEHAVIOUR [None]
  - AGITATION [None]
  - DRUG INEFFECTIVE [None]
  - SUICIDAL IDEATION [None]
